FAERS Safety Report 4782535-5 (Version None)
Quarter: 2005Q3

REPORT INFORMATION
  Report Type: 
  Country: None (occurrence: None)
  Receive Date: 20050929
  Receipt Date: 20050223
  Transmission Date: 20060218
  Serious: No
  Sender: FDA-Public Use
  Company Number: 400509

PATIENT
  Age: 54 Year
  Sex: Female

DRUGS (3)
  1. COREG [Suspect]
     Dosage: 25MG TWICE PER DAY
     Route: 048
     Dates: start: 20030101
  2. ACCUPRIL [Concomitant]
  3. LASIX [Concomitant]

REACTIONS (2)
  - HYPOMETABOLISM [None]
  - WEIGHT LOSS POOR [None]
